FAERS Safety Report 4453956-5 (Version None)
Quarter: 2004Q3

REPORT INFORMATION
  Report Type: 
  Country: None (occurrence: None)
  Receive Date: 20040826
  Receipt Date: 20040707
  Transmission Date: 20050211
  Serious: No
  Sender: FDA-Public Use
  Company Number: WAES 0403USA02247

PATIENT
  Age: 46 Year
  Sex: Male
  Weight: 114.3065 kg

DRUGS (13)
  1. ZETIA [Suspect]
     Indication: HYPERTRIGLYCERIDAEMIA
     Dosage: 10 MG/DAILY/PO
     Route: 048
     Dates: start: 20040114, end: 20040312
  2. ALTACE [Concomitant]
  3. GABITRIL [Concomitant]
  4. LANTUS [Concomitant]
  5. NOVOLOG [Concomitant]
  6. PAXIL [Concomitant]
  7. PRILOSEC [Concomitant]
  8. RESTORIL [Concomitant]
  9. ZELNORM [Concomitant]
  10. ZOCOR [Concomitant]
  11. METHADONE HYDROCHLORIDE [Concomitant]
  12. TRAZDODONE HYDROCHLORIDE [Concomitant]
  13. VITAMIN B COMPLEX CAP [Concomitant]

REACTIONS (1)
  - BLOOD TRIGLYCERIDES INCREASED [None]
